FAERS Safety Report 10631752 (Version 1)
Quarter: 2014Q4

REPORT INFORMATION
  Report Type: Spontaneous
  Country: CN (occurrence: CN)
  Receive Date: 20141205
  Receipt Date: 20141205
  Transmission Date: 20150529
  Serious: Yes (Hospitalization, Other)
  Sender: FDA-Public Use
  Company Number: PHHY2014CN155643

PATIENT
  Age: 60 Year
  Sex: Female

DRUGS (1)
  1. CARBAMAZEPINE. [Suspect]
     Active Substance: CARBAMAZEPINE
     Indication: GLOSSOPHARYNGEAL NEURALGIA
     Route: 048

REACTIONS (15)
  - Odynophagia [Unknown]
  - Abnormal faeces [Recovered/Resolved]
  - Cough [Unknown]
  - Throat tightness [Unknown]
  - Tongue coated [Unknown]
  - Pain [Recovering/Resolving]
  - Tonsillar disorder [Unknown]
  - Ear pain [Unknown]
  - Pulse abnormal [Unknown]
  - Glossopharyngeal neuralgia [Unknown]
  - Tongue discolouration [Unknown]
  - Flatulence [Unknown]
  - Adiposis dolorosa [Unknown]
  - Glossodynia [Not Recovered/Not Resolved]
  - Condition aggravated [Unknown]
